FAERS Safety Report 6623591-9 (Version None)
Quarter: 2010Q1

REPORT INFORMATION
  Report Type: 
  Country: None (occurrence: None)
  Receive Date: 20100310
  Receipt Date: 20091109
  Transmission Date: 20100710
  Serious: No
  Sender: FDA-Public Use
  Company Number: US-BIOGENIDEC-2009BI036119

PATIENT
  Age: 53 Year
  Sex: Female

DRUGS (2)
  1. AVONEX [Suspect]
     Indication: MULTIPLE SCLEROSIS
     Route: 030
     Dates: start: 20090831
  2. ADVIL LIQUI-GELS [Concomitant]
     Indication: PREMEDICATION
     Route: 048
     Dates: start: 20090831

REACTIONS (9)
  - ABASIA [None]
  - ARTHRALGIA [None]
  - FATIGUE [None]
  - INFLUENZA LIKE ILLNESS [None]
  - INSOMNIA [None]
  - NECK PAIN [None]
  - RETCHING [None]
  - THIRST [None]
  - TREMOR [None]
